FAERS Safety Report 16709314 (Version 2)
Quarter: 2025Q3

REPORT INFORMATION
  Report Type: Spontaneous
  Country: US (occurrence: US)
  Receive Date: 20190816
  Receipt Date: 20250708
  Transmission Date: 20251021
  Serious: Yes (Life-Threatening, Hospitalization, Other)
  Sender: AUROBINDO
  Company Number: US-AUROBINDO-AUR-APL-2019-052021

PATIENT
  Age: 54 Year
  Sex: Male

DRUGS (2)
  1. IBUPROFEN [Suspect]
     Active Substance: IBUPROFEN
     Indication: Arthralgia
     Dosage: 800 MILLIGRAM, 3 TIMES A DAY,FOR A FEW MONTHS BEFORE PRESENTATION
     Route: 065
  2. EPINEPHRINE [Concomitant]
     Active Substance: EPINEPHRINE
     Indication: Vocal cord augmentation
     Route: 065

REACTIONS (15)
  - Shock haemorrhagic [Recovering/Resolving]
  - Hepatic artery stenosis [Recovering/Resolving]
  - Symptom masked [Recovering/Resolving]
  - Fall [Recovered/Resolved]
  - Vascular pseudoaneurysm [Recovering/Resolving]
  - Ischaemic hepatitis [Recovering/Resolving]
  - Syncope [Recovered/Resolved]
  - Arterial occlusive disease [Recovering/Resolving]
  - Duodenal ulcer [Recovering/Resolving]
  - Upper gastrointestinal haemorrhage [Recovering/Resolving]
  - Hepatic infarction [Recovering/Resolving]
  - Haemophilus infection [Unknown]
  - Haemoglobin decreased [Unknown]
  - Streptococcal infection [Unknown]
  - Ankle fracture [Recovering/Resolving]
